FAERS Safety Report 7999418-X (Version None)
Quarter: 2011Q4

REPORT INFORMATION
  Report Type: 
  Country: None (occurrence: None)
  Receive Date: 20111221
  Receipt Date: 20111209
  Transmission Date: 20120403
  Serious: Yes (Hospitalization)
  Sender: FDA-Public Use
  Company Number: US-ELI_LILLY_AND_COMPANY-US201112003319

PATIENT
  Sex: Male

DRUGS (6)
  1. HUMALOG MIX 75/25 [Suspect]
     Indication: DIABETES MELLITUS
     Dosage: 20 U, BID
  2. HUMALOG MIX 75/25 [Suspect]
     Dosage: 20 U, BID
  3. HUMALOG MIX 75/25 [Suspect]
     Dosage: 15 U, EACH EVENING
  4. ANTIHYPERTENSIVES [Concomitant]
     Indication: HYPERTENSION
     Dosage: UNK
  5. HUMALOG MIX 75/25 [Suspect]
     Dosage: 15 U, EACH EVENING
  6. INSULIN [Concomitant]
     Dosage: UNK

REACTIONS (3)
  - RENAL FAILURE [None]
  - CATARACT [None]
  - VISUAL ACUITY REDUCED [None]
